FAERS Safety Report 7045773-7 (Version None)
Quarter: 2010Q4

REPORT INFORMATION
  Report Type: 
  Country: None (occurrence: None)
  Receive Date: 20101014
  Receipt Date: 20101007
  Transmission Date: 20110411
  Serious: Yes (Life-Threatening)
  Sender: FDA-Public Use
  Company Number: JP-EISAI INC.-E2090-01303-SPO-JP

PATIENT
  Sex: Male

DRUGS (5)
  1. EXCEGRAN [Suspect]
     Indication: EPILEPSY
     Route: 048
     Dates: start: 20100715, end: 20100831
  2. BERACHIN [Concomitant]
     Route: 048
     Dates: start: 20100819, end: 20100831
  3. THYRADIN-S POWDER [Concomitant]
     Indication: HYPOTHYROIDISM
     Route: 048
     Dates: start: 20100709
  4. MUCODYNE [Concomitant]
     Route: 048
     Dates: end: 20100820
  5. MUCOSOLVAN [Concomitant]
     Route: 048
     Dates: start: 20100726, end: 20100831

REACTIONS (6)
  - CEREBRAL ATROPHY [None]
  - FEEDING DISORDER OF INFANCY OR EARLY CHILDHOOD [None]
  - HYPOHIDROSIS [None]
  - HYPONATRAEMIA [None]
  - RASH [None]
  - URINE OUTPUT DECREASED [None]
